FAERS Safety Report 21529592 (Version 1)
Quarter: 2022Q4

REPORT INFORMATION
  Report Type: Other
  Country: US (occurrence: None)
  Receive Date: 20221031
  Receipt Date: 20221031
  Transmission Date: 20230113
  Serious: No
  Sender: FDA-Public Use
  Company Number: US-ROCHE-3209253

PATIENT
  Age: 56 Year
  Sex: Male

DRUGS (1)
  1. OCREVUS [Suspect]
     Active Substance: OCRELIZUMAB
     Indication: Multiple sclerosis
     Dosage: 600MG , EVERY 6 MONTHS
     Route: 042

REACTIONS (20)
  - Muscular weakness [Unknown]
  - Polyneuropathy [Unknown]
  - Aphasia [Unknown]
  - Neuralgia [Unknown]
  - Neuropathy peripheral [Unknown]
  - Depression [Unknown]
  - Essential hypertension [Unknown]
  - Onychomycosis [Unknown]
  - Back pain [Unknown]
  - Myalgia [Unknown]
  - Dizziness [Unknown]
  - Paraesthesia [Unknown]
  - Tremor [Unknown]
  - Sensory disturbance [Unknown]
  - Speech disorder [Unknown]
  - Asthenia [Unknown]
  - Nervousness [Unknown]
  - Anxiety [Unknown]
  - Haemoglobin decreased [Unknown]
  - Haematocrit decreased [Unknown]
